FAERS Safety Report 8613184-6 (Version None)
Quarter: 2012Q3

REPORT INFORMATION
  Report Type: 
  Country: None (occurrence: None)
  Receive Date: 20120822
  Receipt Date: 20120818
  Transmission Date: 20120928
  Serious: Yes (Hospitalization)
  Sender: FDA-Public Use
  Company Number: VN-BAXTER-2012BAX014834

PATIENT
  Age: 38 Year
  Sex: Female

DRUGS (1)
  1. DIANEAL [Suspect]
     Dosage: 4
     Route: 033
     Dates: start: 20120615

REACTIONS (2)
  - PYREXIA [None]
  - PERITONITIS [None]
